FAERS Safety Report 5796609-3 (Version None)
Quarter: 2008Q2

REPORT INFORMATION
  Report Type: 
  Country: None (occurrence: None)
  Receive Date: 20080627
  Receipt Date: 20080602
  Transmission Date: 20081010
  Serious: Yes (Life-Threatening)
  Sender: FDA-Public Use
  Company Number: 1-16222146

PATIENT
  Age: 39 Year
  Sex: Male
  Weight: 95.2554 kg

DRUGS (3)
  1. FENTANYL [Suspect]
     Indication: BACK PAIN
     Dosage: ONE PATCH EVERY 72 HR, TRANSDERMAL
     Route: 062
     Dates: start: 20080101, end: 20080201
  2. UNSPECIFIED MEDICATION FOR TREATMENT OF HIGH CHOLESTEROL AND HIGH BLOO [Concomitant]
  3. UNSPECIFIED JOINT SUPPLEMENT, DOSAGE AND THERAPY DATES WAS NOT REPORTE [Concomitant]

REACTIONS (5)
  - DRUG EFFECT DECREASED [None]
  - DRUG EFFECT INCREASED [None]
  - DRUG LEVEL FLUCTUATING [None]
  - SOMNAMBULISM [None]
  - SOMNOLENCE [None]
